FAERS Safety Report 7365204-7 (Version None)
Quarter: 2011Q1

REPORT INFORMATION
  Report Type: 
  Country: None (occurrence: None)
  Receive Date: 20110321
  Receipt Date: 20110308
  Transmission Date: 20110831
  Serious: Yes (Life-Threatening)
  Sender: FDA-Public Use
  Company Number: US-BAYER-2011-021323

PATIENT
  Sex: Male
  Weight: 102.4 kg

DRUGS (2)
  1. AVELOX [Suspect]
     Indication: SINUSITIS
     Dosage: 400 MG, QD
     Route: 048
     Dates: start: 20110301, end: 20110301
  2. AVELOX [Suspect]
     Indication: OTITIS MEDIA

REACTIONS (8)
  - TREMOR [None]
  - SWOLLEN TONGUE [None]
  - RASH [None]
  - DYSPEPSIA [None]
  - PHARYNGEAL OEDEMA [None]
  - CHEST DISCOMFORT [None]
  - DYSPHONIA [None]
  - NAUSEA [None]
